FAERS Safety Report 11024948 (Version 1)
Quarter: 2015Q2

REPORT INFORMATION
  Report Type: Spontaneous
  Country: ES (occurrence: ES)
  Receive Date: 20150414
  Receipt Date: 20150414
  Transmission Date: 20150821
  Serious: Yes (Other)
  Sender: FDA-Public Use
  Company Number: ES-AMGEN-ESPSP2015034272

PATIENT
  Age: 34 Year
  Sex: Male

DRUGS (1)
  1. NPLATE [Suspect]
     Active Substance: ROMIPLOSTIM
     Indication: PRODUCT USED FOR UNKNOWN INDICATION
     Dosage: UNK UNK, UNK
     Route: 065

REACTIONS (1)
  - Myocardial infarction [Unknown]
